FAERS Safety Report 14502730 (Version 1)
Quarter: 2018Q1

REPORT INFORMATION
  Report Type: Spontaneous
  Country: US (occurrence: US)
  Receive Date: 20180206
  Receipt Date: 20180206
  Transmission Date: 20180509
  Serious: No
  Sender: FDA-Public Use
  Company Number: None

PATIENT
  Age: 82 Year
  Sex: Male
  Weight: 67.5 kg

DRUGS (1)
  1. DOXORUBICIN [Suspect]
     Active Substance: DOXORUBICIN
     Indication: NEOPLASM MALIGNANT
     Dosage: OTHER
     Route: 042
     Dates: start: 20140228, end: 20140409

REACTIONS (1)
  - Ejection fraction decreased [None]

NARRATIVE: CASE EVENT DATE: 20140416
